FAERS Safety Report 6709988-7 (Version None)
Quarter: 2010Q2

REPORT INFORMATION
  Report Type: 
  Country: None (occurrence: None)
  Receive Date: 20100503
  Receipt Date: 20100503
  Transmission Date: 20101027
  Serious: Yes (Hospitalization, Disabling)
  Sender: FDA-Public Use
  Company Number: None

PATIENT
  Sex: Male
  Weight: 120 kg

DRUGS (2)
  1. GENTAMICIN [Suspect]
     Indication: BACTERAEMIA
     Dosage: 550MG DAILY INTRAVENOUSLY
     Route: 042
     Dates: start: 20100411, end: 20100415
  2. GENTAMICIN [Suspect]
     Indication: PNEUMONIA
     Dosage: 550MG DAILY INTRAVENOUSLY
     Route: 042
     Dates: start: 20100411, end: 20100415

REACTIONS (1)
  - RENAL FAILURE ACUTE [None]
